FAERS Safety Report 20836314 (Version 1)
Quarter: 2022Q2

REPORT INFORMATION
  Report Type: Spontaneous
  Country: US (occurrence: US)
  Receive Date: 20220517
  Receipt Date: 20220517
  Transmission Date: 20220721
  Serious: Yes (Hospitalization, Other)
  Sender: FDA-Public Use
  Company Number: US-JNJFOC-20220517411

PATIENT
  Sex: Female

DRUGS (1)
  1. AVEENO SOOTHING BATH TREATMENT [Suspect]
     Active Substance: OATMEAL
     Indication: Product used for unknown indication
     Dosage: NOT KNOWN ONCE
     Route: 061
     Dates: start: 2022

REACTIONS (1)
  - Anaphylactic reaction [Recovered/Resolved]

NARRATIVE: CASE EVENT DATE: 20220101
